FAERS Safety Report 25637954 (Version 1)
Quarter: 2025Q3

REPORT INFORMATION
  Report Type: Spontaneous
  Country: US (occurrence: US)
  Receive Date: 20250804
  Receipt Date: 20250804
  Transmission Date: 20251020
  Serious: No
  Sender: LEO PHARM
  Company Number: US-LEO Pharma-381799

PATIENT
  Age: 66 Year
  Sex: Female

DRUGS (1)
  1. ADBRY [Suspect]
     Active Substance: TRALOKINUMAB-LDRM
     Indication: Product used for unknown indication
     Dosage: TREATMENT ONGOING
     Route: 058

REACTIONS (3)
  - Conjunctivitis [Unknown]
  - Vision blurred [Unknown]
  - Visual impairment [Unknown]
